FAERS Safety Report 19084925 (Version 3)
Quarter: 2022Q1

REPORT INFORMATION
  Report Type: Spontaneous
  Country: CA (occurrence: CA)
  Receive Date: 20210401
  Receipt Date: 20220324
  Transmission Date: 20220423
  Serious: Yes (Other)
  Sender: FDA-Public Use
  Company Number: CA-PFIZER INC-2021344250

PATIENT
  Sex: Female

DRUGS (10)
  1. ENBREL [Suspect]
     Active Substance: ETANERCEPT
     Dosage: UNK
     Route: 065
  2. METHOTREXATE SODIUM [Suspect]
     Active Substance: METHOTREXATE SODIUM
     Dosage: UNK
     Route: 065
  3. HUMIRA [Suspect]
     Active Substance: ADALIMUMAB
     Indication: Rheumatoid arthritis
     Dosage: UNK
     Route: 058
  4. SIMPONI [Suspect]
     Active Substance: GOLIMUMAB
     Dosage: UNK
     Route: 065
  5. BENETHAMINE PENICILLIN\PENICILLIN G SODIUM [Suspect]
     Active Substance: BENETHAMINE PENICILLIN\PENICILLIN G SODIUM
     Dosage: UNK
     Route: 065
  6. PENICILLIN G SODIUM [Suspect]
     Active Substance: PENICILLIN G SODIUM
     Dosage: UNK
     Route: 065
  7. CELEBREX [Concomitant]
     Active Substance: CELECOXIB
     Dosage: UNK
  8. HYDROXYCHLOROQUINE [Concomitant]
     Active Substance: HYDROXYCHLOROQUINE
     Dosage: UNK
  9. MORPHINE [Concomitant]
     Active Substance: MORPHINE
     Dosage: UNK
     Route: 065
  10. XELJANZ [Concomitant]
     Active Substance: TOFACITINIB CITRATE
     Indication: Rheumatoid arthritis
     Dosage: 5 MILLIGRAM, BID
     Route: 048

REACTIONS (15)
  - Chills [Unknown]
  - Colitis [Unknown]
  - Dermatitis allergic [Unknown]
  - Drug hypersensitivity [Unknown]
  - Drug hypersensitivity [Unknown]
  - Fatigue [Unknown]
  - Feeling hot [Unknown]
  - Headache [Unknown]
  - Injection site pain [Unknown]
  - Joint range of motion decreased [Unknown]
  - Joint swelling [Unknown]
  - Myalgia [Unknown]
  - Nausea [Unknown]
  - Osteoarthritis [Unknown]
  - Therapeutic product effect incomplete [Unknown]
